FAERS Safety Report 12380665 (Version 1)
Quarter: 2016Q2

REPORT INFORMATION
  Report Type: Spontaneous
  Country: US (occurrence: US)
  Receive Date: 20160518
  Receipt Date: 20160518
  Transmission Date: 20160815
  Serious: No
  Sender: FDA-Public Use
  Company Number: US-BIOGEN-2016BI00225811

PATIENT
  Sex: Female

DRUGS (1)
  1. TECFIDERA [Suspect]
     Active Substance: DIMETHYL FUMARATE
     Indication: MULTIPLE SCLEROSIS
     Route: 048
     Dates: start: 20140714, end: 20160414

REACTIONS (4)
  - Visual impairment [Not Recovered/Not Resolved]
  - Pain [Not Recovered/Not Resolved]
  - Balance disorder [Not Recovered/Not Resolved]
  - Malaise [Not Recovered/Not Resolved]
